FAERS Safety Report 11159518 (Version 2)
Quarter: 2015Q4

REPORT INFORMATION
  Report Type: Spontaneous
  Country: US (occurrence: US)
  Receive Date: 20150603
  Receipt Date: 20151023
  Transmission Date: 20160304
  Serious: Yes (Death, Hospitalization)
  Sender: FDA-Public Use
  Company Number: US-LUNDBECK-DKLU1113233

PATIENT
  Age: 80 Year
  Sex: Male

DRUGS (19)
  1. NORTHERA [Suspect]
     Active Substance: DROXIDOPA
     Indication: PARKINSON^S DISEASE
     Dosage: AT 8AM, 12PM AND 4PM
     Route: 048
     Dates: start: 20150428
  2. NORTHERA [Suspect]
     Active Substance: DROXIDOPA
     Dosage: AT 8AM, 12PM AND 4PM
     Route: 048
     Dates: start: 20150501
  3. MELATONIN [Concomitant]
     Active Substance: MELATONIN
     Indication: INSOMNIA
     Dosage: AT 9PM
     Route: 048
     Dates: start: 20150216
  4. GLUCOSAMINE CHONDROITIN CAPLET, DOUBLE STR [Concomitant]
     Indication: SUPPLEMENTATION THERAPY
     Dosage: AT 9AM AND 5PM
     Route: 048
     Dates: start: 20150217
  5. CHOLECALCIFEROL USP/NF, VITAMIN D3 CRYSTALS [Concomitant]
     Indication: HYPOVITAMINOSIS
     Dosage: AT 9AM WITH BREAKFAST
     Route: 048
     Dates: start: 20150217
  6. OXYBUTYNIN CHLORIDE U-D [Concomitant]
     Indication: BENIGN PROSTATIC HYPERPLASIA
  7. SINEMET 25-100 [Concomitant]
     Indication: PARKINSON^S DISEASE
     Dosage: AT 9PM
     Route: 048
     Dates: start: 20150216
  8. DIGOXIN. [Concomitant]
     Active Substance: DIGOXIN
     Indication: ATRIAL FIBRILLATION
     Dosage: AT 9PM
     Route: 048
     Dates: start: 20150216
  9. COUMADIN [Concomitant]
     Active Substance: WARFARIN SODIUM
     Indication: PRODUCT USED FOR UNKNOWN INDICATION
     Dosage: AT 6PM
     Route: 048
     Dates: start: 20150424
  10. NORTHERA [Suspect]
     Active Substance: DROXIDOPA
     Dosage: AT 8AM, 12PM AND 4PM
     Route: 048
     Dates: start: 20150503
  11. QUESTRAN OUTER [Concomitant]
     Indication: DIARRHOEA
     Dosage: AT 9AM AND 9PM
     Route: 048
     Dates: start: 20150313
  12. PROSCAR F/C [Concomitant]
     Indication: BENIGN PROSTATIC HYPERPLASIA
     Dosage: AT 9AM WITH BREAKFAST
     Route: 048
     Dates: start: 20150330
  13. RESOURCE [Concomitant]
     Active Substance: AMINO ACIDS\CARBOHYDRATES\MINERALS\SOYBEAN OIL\VITAMINS
     Indication: SUPPLEMENTATION THERAPY
     Dosage: AT 11AM AND 8PM
     Route: 048
     Dates: start: 20150330
  14. NU-IRON 150 [Concomitant]
     Indication: ANAEMIA
     Dosage: AT 9AM AND 5PM
     Route: 048
     Dates: start: 20150216
  15. SINEMET 25-100 [Concomitant]
     Dosage: AT 8AM, 11:15AM AND 4:15PM
     Route: 048
     Dates: start: 20150217
  16. ATENOLOL. [Concomitant]
     Active Substance: ATENOLOL
     Indication: HYPERTENSION
     Dosage: AT 9AM
     Route: 048
     Dates: start: 20150217
  17. NORTHERA [Suspect]
     Active Substance: DROXIDOPA
     Indication: BASAL GANGLION DEGENERATION
     Route: 065
     Dates: start: 20150513
  18. VITAMIN C [Concomitant]
     Active Substance: ASCORBIC ACID
     Indication: SUPPLEMENTATION THERAPY
     Dosage: AT 9AM
     Route: 048
     Dates: start: 20150217
  19. OXYBUTYNIN CHLORIDE U-D [Concomitant]
     Indication: BLADDER DYSFUNCTION
     Dosage: AT 9PM
     Route: 048
     Dates: start: 20150216

REACTIONS (12)
  - Lactic acidosis [Unknown]
  - Urinary tract infection [Unknown]
  - Malnutrition [Unknown]
  - Death [Fatal]
  - Escherichia sepsis [Unknown]
  - Hypernatraemia [Unknown]
  - Enterococcal sepsis [Unknown]
  - Acute kidney injury [Unknown]
  - Respiratory failure [Unknown]
  - Pneumonia [Unknown]
  - Staphylococcal infection [Unknown]
  - Hypokalaemia [Unknown]

NARRATIVE: CASE EVENT DATE: 20150526
